FAERS Safety Report 8344039-2 (Version None)
Quarter: 2012Q2

REPORT INFORMATION
  Report Type: 
  Country: None (occurrence: None)
  Receive Date: 20120504
  Receipt Date: 20120425
  Transmission Date: 20120825
  Serious: Yes (Other)
  Sender: FDA-Public Use
  Company Number: DKLU1078864

PATIENT
  Age: 10 Year
  Sex: Female

DRUGS (3)
  1. SABRIL [Suspect]
     Indication: INFANTILE SPASMS
     Dosage: 1000 MG MILLIGRAM(S), 2 IN 1 D, ORAL
     Route: 048
  2. BENZODIAZEPINE (BENZODIAZEPINE) [Concomitant]
  3. VALPROIC ACID [Concomitant]

REACTIONS (1)
  - RETINOGRAM ABNORMAL [None]
